FAERS Safety Report 9247364 (Version 2)
Quarter: 2013Q2

REPORT INFORMATION
  Report Type: Report from Study
  Country: CA (occurrence: CA)
  Receive Date: 20130423
  Receipt Date: 20130426
  Transmission Date: 20140414
  Serious: Yes (Hospitalization)
  Sender: FDA-Public Use
  Company Number: CA-JNJFOC-20130411469

PATIENT
  Age: 45 Year
  Sex: Male
  Weight: 67.5 kg

DRUGS (5)
  1. REMICADE [Suspect]
     Indication: ANKYLOSING SPONDYLITIS
     Route: 042
     Dates: start: 20111117
  2. REMICADE [Suspect]
     Indication: ANKYLOSING SPONDYLITIS
     Route: 042
     Dates: start: 20130411
  3. METHOTREXATE [Concomitant]
     Dosage: QUANTITY SUFFICIENT
     Route: 048
  4. FOLIC ACID [Concomitant]
     Dosage: QUANTITY SUFFICIENT
     Route: 048
  5. CELEBREX [Concomitant]
     Route: 048

REACTIONS (1)
  - Small intestinal obstruction [Recovered/Resolved]
